FAERS Safety Report 5678294-4 (Version None)
Quarter: 2008Q1

REPORT INFORMATION
  Report Type: 
  Country: None (occurrence: None)
  Receive Date: 20080320
  Receipt Date: 20080314
  Transmission Date: 20080703
  Serious: Yes (Hospitalization)
  Sender: FDA-Public Use
  Company Number: A0715661A

PATIENT
  Age: 53 Year
  Sex: Female

DRUGS (2)
  1. SODIUM FLUORIDE + POTASSIUM NITRATE (FORMULATION UNKNOW ) (SODIUM FLUO [Suspect]
     Indication: SENSITIVITY OF TEETH
     Dates: start: 20070219, end: 20080219
  2. SODIUM-FLUORIDE GEL (SODIUM FLUORIDE) [Suspect]
     Dosage: AS DIRECTED/ DENTAL
     Route: 004

REACTIONS (19)
  - ATRIAL FIBRILLATION [None]
  - DRUG INTERACTION [None]
  - DYSPHONIA [None]
  - HEART RATE INCREASED [None]
  - INSOMNIA [None]
  - LIP SWELLING [None]
  - LOSS OF CONSCIOUSNESS [None]
  - MALAISE [None]
  - MYDRIASIS [None]
  - NAUSEA [None]
  - OEDEMA MOUTH [None]
  - PAIN IN JAW [None]
  - PHARYNGOLARYNGEAL PAIN [None]
  - RASH [None]
  - RETCHING [None]
  - SYNCOPE VASOVAGAL [None]
  - THROAT TIGHTNESS [None]
  - URTICARIA [None]
  - VOMITING [None]
